FAERS Safety Report 14613394 (Version 1)
Quarter: 2018Q1

REPORT INFORMATION
  Report Type: Spontaneous
  Country: GB (occurrence: GB)
  Receive Date: 20180308
  Receipt Date: 20180308
  Transmission Date: 20180509
  Serious: Yes (Other)
  Sender: FDA-Public Use
  Company Number: GB-TEVA-2018-GB-865803

PATIENT
  Age: 56 Year
  Sex: Female
  Weight: 68 kg

DRUGS (14)
  1. PREDNISOLONE. [Concomitant]
     Active Substance: PREDNISOLONE
     Dosage: 6 DOSAGE FORMS DAILY;
     Route: 065
     Dates: start: 20171214, end: 20180107
  2. VAGIFEM [Concomitant]
     Active Substance: ESTRADIOL
     Dosage: 1 DAILY FOR TWO WEEKS PER VAGINA THEN 1 TWICE W...
     Route: 067
  3. MEBEVERINE HYDROCHLORIDE [Concomitant]
     Active Substance: MEBEVERINE HYDROCHLORIDE
     Dosage: 3 DOSAGE FORMS DAILY; 20 MINUTES BEFORE FOOD WHEN ...
     Route: 065
     Dates: start: 20170426
  4. FEXOFENADINE [Concomitant]
     Active Substance: FEXOFENADINE\FEXOFENADINE HYDROCHLORIDE
     Indication: ANTIALLERGIC THERAPY
     Dosage: 1 DOSAGE FORMS DAILY;
     Route: 065
     Dates: start: 20170426
  5. AMITRIPTYLINE HYDROCHLORIDE. [Concomitant]
     Active Substance: AMITRIPTYLINE HYDROCHLORIDE
     Dosage: 1-3 EVERY NIGHT
     Route: 065
     Dates: start: 20170426
  6. ESTRIOL [Concomitant]
     Active Substance: ESTRIOL
     Dosage: APPLY AT NIGHT TO VULVAL AREA. EVERY NIGHT FOR ...
     Route: 061
     Dates: start: 20170426
  7. AMOXICILLIN. [Suspect]
     Active Substance: AMOXICILLIN
     Route: 065
     Dates: start: 20171023
  8. RANITIDINE. [Concomitant]
     Active Substance: RANITIDINE
     Indication: DYSPEPSIA
     Dosage: 2 DOSAGE FORMS DAILY;
     Route: 065
     Dates: start: 20170426
  9. VAGIFEM [Concomitant]
     Active Substance: ESTRADIOL
     Dosage: 1 DOSAGE FORMS DAILY; 1 DAILY FOR TWO WEEKS PER VAGINA THEN 1 TWICE W...
     Route: 067
     Dates: start: 20170426
  10. CITALOPRAM [Concomitant]
     Active Substance: CITALOPRAM HYDROBROMIDE
     Dosage: 1 DOSAGE FORMS DAILY;
     Route: 065
     Dates: start: 20170426
  11. OMEPRAZOLE. [Concomitant]
     Active Substance: OMEPRAZOLE
     Dosage: 2 DOSAGE FORMS DAILY;
     Route: 065
     Dates: start: 20170426
  12. VENTOLIN [Concomitant]
     Active Substance: ALBUTEROL SULFATE
     Dosage: 8 DOSAGE FORMS DAILY;
     Route: 055
     Dates: start: 20170426
  13. DOXYCYCLINE. [Concomitant]
     Active Substance: DOXYCYCLINE
     Dosage: 2 DOSAGE FORMS DAILY;
     Route: 065
     Dates: start: 20171208, end: 20171218
  14. SERETIDE [Concomitant]
     Active Substance: FLUTICASONE PROPIONATE\SALMETEROL XINAFOATE
     Dosage: 4 DOSAGE FORMS DAILY;
     Route: 055
     Dates: start: 20170426

REACTIONS (3)
  - Lip swelling [Recovered/Resolved]
  - Dyspepsia [Unknown]
  - Diarrhoea [Unknown]

NARRATIVE: CASE EVENT DATE: 20171023
